FAERS Safety Report 12236900 (Version 2)
Quarter: 2016Q2

REPORT INFORMATION
  Report Type: Spontaneous
  Country: US (occurrence: US)
  Receive Date: 20160405
  Receipt Date: 20160422
  Transmission Date: 20160815
  Serious: Yes (Other)
  Sender: FDA-Public Use
  Company Number: US-AEGERION-AEGR002338

PATIENT
  Sex: Male

DRUGS (8)
  1. INSULINE GLARGINE [Concomitant]
     Active Substance: INSULIN GLARGINE
     Indication: DIABETES MELLITUS
     Dosage: 60 UNITS, BID
     Route: 058
     Dates: start: 20140327
  2. LISINOPRIL. [Concomitant]
     Active Substance: LISINOPRIL
     Indication: MICROALBUMINURIA
     Dosage: 5 MG, QD
     Route: 048
     Dates: start: 20150414
  3. ASPARTATE MAGNESIUM [Concomitant]
     Indication: DIABETES MELLITUS
     Dosage: VARIABLE DOSES WITH MEALS
     Route: 048
     Dates: start: 20140327
  4. GEMFIBROZIL. [Concomitant]
     Active Substance: GEMFIBROZIL
     Indication: HYPERTRIGLYCERIDAEMIA
     Dosage: 600 MG, BID
     Route: 048
     Dates: start: 20140327, end: 20150817
  5. MYALEPT [Suspect]
     Active Substance: METRELEPTIN
     Indication: CONGENITAL GENERALISED LIPODYSTROPHY
     Dosage: 2.5 MG, QD
     Route: 058
     Dates: start: 20150310
  6. CHOLECALCIFEROL [Concomitant]
     Active Substance: CHOLECALCIFEROL
     Indication: VITAMIN D DEFICIENCY
     Dosage: 1000 IU, QD
     Route: 048
     Dates: start: 20140327
  7. MYALEPT [Suspect]
     Active Substance: METRELEPTIN
     Dosage: 10 MG, QD
     Route: 058
  8. METFORMIN [Concomitant]
     Active Substance: METFORMIN HYDROCHLORIDE
     Indication: INSULIN RESISTANT DIABETES
     Dosage: 1000 MG, BID
     Route: 048
     Dates: start: 20140327

REACTIONS (5)
  - Insulin resistance [Unknown]
  - Diabetes mellitus [Unknown]
  - Hyperphagia [Unknown]
  - Hyperglycaemia [Unknown]
  - Drug ineffective [Not Recovered/Not Resolved]

NARRATIVE: CASE EVENT DATE: 2015
